FAERS Safety Report 5055794-1 (Version None)
Quarter: 2006Q3

REPORT INFORMATION
  Report Type: 
  Country: None (occurrence: None)
  Receive Date: 20060720
  Receipt Date: 20060712
  Transmission Date: 20061208
  Serious: Yes (Other)
  Sender: FDA-Public Use
  Company Number: NO-JNJFOC-20060702228

PATIENT
  Sex: Male

DRUGS (6)
  1. REMICADE [Suspect]
     Indication: CROHN'S DISEASE
     Route: 042
  2. REMICADE [Suspect]
     Indication: ANKYLOSING SPONDYLITIS
     Route: 042
  3. SULFASALAZINE [Concomitant]
     Indication: CROHN'S DISEASE
     Route: 048
  4. SULFASALAZINE [Concomitant]
     Indication: ANKYLOSING SPONDYLITIS
     Route: 048
  5. PARACETAMOL [Concomitant]
     Indication: PROPHYLAXIS
     Route: 048
  6. CETIRIZINE [Concomitant]
     Indication: PROPHYLAXIS
     Route: 048

REACTIONS (2)
  - BASAL CELL CARCINOMA [None]
  - INFUSION RELATED REACTION [None]
